FAERS Safety Report 5361656-2 (Version None)
Quarter: 2007Q2

REPORT INFORMATION
  Report Type: 
  Country: None (occurrence: None)
  Receive Date: 20070615
  Receipt Date: 20070615
  Transmission Date: 20071010
  Serious: Yes (Hospitalization)
  Sender: FDA-Public Use
  Company Number: None

PATIENT
  Age: 31 Year
  Sex: Female

DRUGS (2)
  1. PENTOTHAL [Suspect]
     Indication: ELECTROCONVULSIVE THERAPY
     Dosage: 200 MG X1 IV BOLUS
     Route: 040
     Dates: start: 20070406, end: 20070523
  2. PENTOTHAL [Suspect]
     Indication: SEDATIVE THERAPY
     Dosage: 200 MG X1 IV BOLUS
     Route: 040
     Dates: start: 20070406, end: 20070523

REACTIONS (1)
  - DRUG INEFFECTIVE [None]
